FAERS Safety Report 4579155-4 (Version None)
Quarter: 2005Q1

REPORT INFORMATION
  Report Type: 
  Country: None (occurrence: None)
  Receive Date: 20050208
  Receipt Date: 20050208
  Transmission Date: 20050727
  Serious: Yes (Other)
  Sender: FDA-Public Use
  Company Number: None

PATIENT
  Age: 42 Year
  Sex: Male
  Weight: 68.9467 kg

DRUGS (3)
  1. OXYCONTIN [Suspect]
     Indication: ATROPHY
     Dosage: 80 MG PO (2) TID
  2. OXYCONTIN [Suspect]
     Indication: NEUROFIBROMATOSIS
     Dosage: 80 MG PO (2) TID
  3. OXYCONTIN [Suspect]
     Indication: NEUROPATHY
     Dosage: 80 MG PO (2) TID

REACTIONS (2)
  - DRUG INEFFECTIVE [None]
  - PHARMACEUTICAL PRODUCT COMPLAINT [None]
